FAERS Safety Report 8086995-6 (Version None)
Quarter: 2012Q1

REPORT INFORMATION
  Report Type: 
  Country: None (occurrence: None)
  Receive Date: 20120128
  Receipt Date: 20110520
  Transmission Date: 20120608
  Serious: No
  Sender: FDA-Public Use
  Company Number: US-ABBOTT-11P-163-0727472-00

PATIENT
  Age: 63 Year
  Sex: Female

DRUGS (10)
  1. ARTHROTEC [Concomitant]
     Indication: PRODUCT USED FOR UNKNOWN INDICATION
  2. FOLIC ACID [Concomitant]
     Indication: PRODUCT USED FOR UNKNOWN INDICATION
  3. LEVOTHYROXINE SODIUM [Concomitant]
     Indication: HYPOTHYROIDISM
     Dosage: DAILY
  4. GLUCOPHAGE [Concomitant]
     Indication: DIABETES MELLITUS
  5. MULTI-VITAMINS [Concomitant]
     Indication: PRODUCT USED FOR UNKNOWN INDICATION
     Dosage: DAILY
  6. HUMIRA [Suspect]
     Indication: RHEUMATOID ARTHRITIS
     Dates: start: 20110319
  7. DIOVAN [Concomitant]
     Indication: BLOOD PRESSURE
  8. GLYBURIDE [Concomitant]
     Indication: DIABETES MELLITUS
  9. SIMVASTATIN [Concomitant]
     Indication: BLOOD CHOLESTEROL
  10. METHOTREXATE [Concomitant]
     Indication: PRODUCT USED FOR UNKNOWN INDICATION
     Dosage: 6 PILLS WEEKLY

REACTIONS (1)
  - INJECTION SITE PAIN [None]
